FAERS Safety Report 8499247-7 (Version None)
Quarter: 2012Q3

REPORT INFORMATION
  Report Type: 
  Country: None (occurrence: None)
  Receive Date: 20120710
  Receipt Date: 20120702
  Transmission Date: 20120928
  Serious: Yes (Other)
  Sender: FDA-Public Use
  Company Number: PHEH2012US010678

PATIENT
  Sex: Female
  Weight: 108 kg

DRUGS (5)
  1. ATIVAN [Concomitant]
  2. FORTICAL [Suspect]
  3. BUSPAR [Concomitant]
     Indication: ANXIETY
     Dosage: 10 MG, BID
     Route: 048
  4. MIACALCIN [Suspect]
     Indication: OSTEOPOROSIS
     Dosage: 1SPRAY EACH NOSTRIL EVERY OTHER DAY
     Route: 045
     Dates: start: 20110101, end: 20120501
  5. LOPID [Concomitant]
     Indication: BLOOD TRIGLYCERIDES INCREASED
     Dosage: 600 MG, BID

REACTIONS (11)
  - MUSCULOSKELETAL STIFFNESS [None]
  - FLUSHING [None]
  - HOT FLUSH [None]
  - ASTHENIA [None]
  - NASAL DISCOMFORT [None]
  - HEADACHE [None]
  - MALAISE [None]
  - FATIGUE [None]
  - MEMORY IMPAIRMENT [None]
  - NAUSEA [None]
  - BACK PAIN [None]
